FAERS Safety Report 6217844-6 (Version None)
Quarter: 2009Q2

REPORT INFORMATION
  Report Type: 
  Country: None (occurrence: None)
  Receive Date: 20090608
  Receipt Date: 20090528
  Transmission Date: 20091009
  Serious: Yes (Life-Threatening)
  Sender: FDA-Public Use
  Company Number: JP-ASTRAZENECA-2009AC01358

PATIENT
  Age: 72 Year
  Sex: Male
  Weight: 60 kg

DRUGS (13)
  1. SEROQUEL [Interacting]
     Indication: DELIRIUM
     Route: 048
     Dates: start: 20090421, end: 20090506
  2. SEROQUEL [Interacting]
     Route: 048
     Dates: start: 20090421, end: 20090506
  3. SEROQUEL [Interacting]
     Route: 048
     Dates: start: 20090507
  4. SEROQUEL [Interacting]
     Route: 048
     Dates: start: 20090507
  5. SEROQUEL [Interacting]
     Route: 048
  6. SEROQUEL [Interacting]
     Route: 048
  7. CIBENOL [Interacting]
     Indication: ARRHYTHMIA PROPHYLAXIS
     Route: 048
     Dates: end: 20090506
  8. CIBENOL [Interacting]
     Route: 048
     Dates: start: 20090507
  9. CIBENOL [Interacting]
     Route: 048
  10. ATARAX [Suspect]
     Route: 048
     Dates: start: 20090421
  11. WARFARIN SODIUM [Concomitant]
     Route: 048
  12. MAGMITT [Concomitant]
     Route: 048
  13. GAMOFA [Concomitant]
     Route: 048

REACTIONS (4)
  - ATRIOVENTRICULAR BLOCK COMPLETE [None]
  - CARDIAC ARREST [None]
  - DRUG INTERACTION [None]
  - VENTRICULAR TACHYCARDIA [None]
